FAERS Safety Report 8442019-X (Version None)
Quarter: 2012Q2

REPORT INFORMATION
  Report Type: 
  Country: None (occurrence: None)
  Receive Date: 20120615
  Receipt Date: 20120607
  Transmission Date: 20120825
  Serious: Yes (Other)
  Sender: FDA-Public Use
  Company Number: BE-JNJFOC-20120603363

PATIENT
  Sex: Female
  Weight: 45 kg

DRUGS (4)
  1. PALIPERIDONE [Suspect]
     Indication: SCHIZOPHRENIA
     Route: 030
     Dates: start: 20120416
  2. PALIPERIDONE [Suspect]
     Route: 030
     Dates: start: 20120316
  3. PALIPERIDONE [Suspect]
     Route: 030
     Dates: start: 20120216
  4. PALIPERIDONE [Suspect]
     Route: 030
     Dates: start: 20120516

REACTIONS (4)
  - PRURITUS [None]
  - LACRIMATION INCREASED [None]
  - PARAESTHESIA ORAL [None]
  - SNEEZING [None]
